FAERS Safety Report 22325370 (Version 1)
Quarter: 2023Q2

REPORT INFORMATION
  Report Type: Spontaneous
  Country: US (occurrence: US)
  Receive Date: 20230516
  Receipt Date: 20230516
  Transmission Date: 20230721
  Serious: Yes (Hospitalization)
  Sender: FDA-Public Use
  Company Number: US-ARGENX-2023-ARGX-US001498

PATIENT

DRUGS (31)
  1. VYVGART [Suspect]
     Active Substance: EFGARTIGIMOD ALFA-FCAB
     Indication: Myasthenia gravis
     Dosage: 700 MG
     Route: 065
  2. VYVGART [Suspect]
     Active Substance: EFGARTIGIMOD ALFA-FCAB
     Dosage: UNK
     Route: 065
     Dates: start: 20220503
  3. VYVGART [Suspect]
     Active Substance: EFGARTIGIMOD ALFA-FCAB
     Dosage: UNK
     Route: 065
     Dates: start: 20220510
  4. VYVGART [Suspect]
     Active Substance: EFGARTIGIMOD ALFA-FCAB
     Dosage: UNK
     Route: 065
     Dates: start: 20220517
  5. VYVGART [Suspect]
     Active Substance: EFGARTIGIMOD ALFA-FCAB
     Dosage: UNK
     Route: 065
     Dates: start: 20220531
  6. VYVGART [Suspect]
     Active Substance: EFGARTIGIMOD ALFA-FCAB
     Dosage: UNK
     Route: 065
     Dates: start: 20220822
  7. VYVGART [Suspect]
     Active Substance: EFGARTIGIMOD ALFA-FCAB
     Dosage: UNK
     Route: 065
     Dates: start: 20220829
  8. VYVGART [Suspect]
     Active Substance: EFGARTIGIMOD ALFA-FCAB
     Dosage: UNK
     Route: 065
     Dates: start: 20220906
  9. VYVGART [Suspect]
     Active Substance: EFGARTIGIMOD ALFA-FCAB
     Dosage: UNK
     Route: 065
     Dates: start: 20220912
  10. VYVGART [Suspect]
     Active Substance: EFGARTIGIMOD ALFA-FCAB
     Dosage: UNK
     Route: 065
     Dates: start: 20221115
  11. VYVGART [Suspect]
     Active Substance: EFGARTIGIMOD ALFA-FCAB
     Dosage: UNK
     Route: 065
     Dates: start: 20221121
  12. VYVGART [Suspect]
     Active Substance: EFGARTIGIMOD ALFA-FCAB
     Dosage: UNK
     Route: 065
     Dates: start: 20221128
  13. VYVGART [Suspect]
     Active Substance: EFGARTIGIMOD ALFA-FCAB
     Dosage: UNK
     Route: 065
     Dates: start: 20221205
  14. VYVGART [Suspect]
     Active Substance: EFGARTIGIMOD ALFA-FCAB
     Dosage: UNK
     Route: 065
     Dates: start: 20230109
  15. VYVGART [Suspect]
     Active Substance: EFGARTIGIMOD ALFA-FCAB
     Dosage: UNK
     Route: 065
     Dates: start: 20230116
  16. VYVGART [Suspect]
     Active Substance: EFGARTIGIMOD ALFA-FCAB
     Dosage: UNK
     Route: 065
     Dates: start: 20230123
  17. VYVGART [Suspect]
     Active Substance: EFGARTIGIMOD ALFA-FCAB
     Dosage: UNK
     Route: 065
     Dates: start: 20230130
  18. VYVGART [Suspect]
     Active Substance: EFGARTIGIMOD ALFA-FCAB
     Dosage: UNK
     Route: 065
     Dates: start: 20230307
  19. VYVGART [Suspect]
     Active Substance: EFGARTIGIMOD ALFA-FCAB
     Dosage: UNK
     Route: 065
     Dates: start: 20230314
  20. VYVGART [Suspect]
     Active Substance: EFGARTIGIMOD ALFA-FCAB
     Dosage: UNK
     Route: 065
     Dates: start: 20230321
  21. VYVGART [Suspect]
     Active Substance: EFGARTIGIMOD ALFA-FCAB
     Dosage: UNK
     Route: 065
     Dates: start: 20230328
  22. ASPIRIN [Concomitant]
     Active Substance: ASPIRIN
     Indication: Product used for unknown indication
     Dosage: 1 DF, DAILY
     Route: 048
  23. CALCIUM CARBONATE [Concomitant]
     Active Substance: CALCIUM CARBONATE
     Indication: Product used for unknown indication
     Dosage: 1 DF, DAILY
     Route: 048
  24. CALCIUM\MAGNESIUM\ZINC [Concomitant]
     Active Substance: CALCIUM\MAGNESIUM\ZINC
     Indication: Product used for unknown indication
     Dosage: 3 DF, DAILY
     Route: 048
  25. ZYRTEC [Concomitant]
     Active Substance: CETIRIZINE HYDROCHLORIDE
     Indication: Product used for unknown indication
     Dosage: 1 DF, DAILY
     Route: 048
  26. FLONASE [Concomitant]
     Active Substance: FLUTICASONE PROPIONATE
     Indication: Product used for unknown indication
     Dosage: 1 SPRAY TO EACH NOSTRIL AS DIRECTED
     Route: 045
  27. LIDODERM [Concomitant]
     Active Substance: LIDOCAINE
     Indication: Product used for unknown indication
     Dosage: 1 PATCH
     Route: 061
     Dates: start: 20201207
  28. ZOFRAN [Concomitant]
     Active Substance: ONDANSETRON HYDROCHLORIDE
     Indication: Product used for unknown indication
     Dosage: 1 DF EVERY 8 HRS
     Route: 048
     Dates: start: 20201228
  29. Vitamin d3 gummy [Concomitant]
     Indication: Product used for unknown indication
     Dosage: UNK
     Route: 065
  30. VITAMIN B12 [Concomitant]
     Active Substance: CYANOCOBALAMIN
     Indication: Product used for unknown indication
     Dosage: UNK
     Route: 065
  31. VENTOLIN HFA [Concomitant]
     Active Substance: ALBUTEROL SULFATE
     Indication: Product used for unknown indication
     Dosage: INHALE ONE PUFF BY MOUTH INTO THE LUNGS
     Route: 065
     Dates: start: 20220505

REACTIONS (9)
  - Flank pain [Unknown]
  - Abdominal pain [Unknown]
  - Urinary tract pain [Unknown]
  - Myasthenia gravis [Unknown]
  - Pneumonia [Unknown]
  - Aspiration [Unknown]
  - COVID-19 [Unknown]
  - Pneumonia [Unknown]
  - Pneumonia [Unknown]

NARRATIVE: CASE EVENT DATE: 20220612
